FAERS Safety Report 4717715-8 (Version None)
Quarter: 2005Q3

REPORT INFORMATION
  Report Type: 
  Country: None (occurrence: None)
  Receive Date: 20050715
  Receipt Date: 20050707
  Transmission Date: 20060218
  Serious: No
  Sender: FDA-Public Use
  Company Number: 2005-02378

PATIENT
  Age: 19 Year
  Sex: Female
  Weight: 62.6 kg

DRUGS (9)
  1. LORAZEPAM [Suspect]
     Indication: ANAESTHETIC PREMEDICATION
     Dosage: 1 TABLET,SINGLE, ORAL
     Route: 048
     Dates: start: 20050706, end: 20050706
  2. LIDOCAINE [Suspect]
     Indication: ANAESTHETIC PREMEDICATION
     Dosage: INTERCOSTAL BLOCK X 1 DOSE
     Dates: start: 20050707, end: 20050707
  3. DILAUDID [Suspect]
     Indication: ANAESTHETIC PREMEDICATION
     Dosage: 1.8 MG, SINGLE DOSE, INTRAVENOUS
     Route: 042
     Dates: start: 20050707, end: 20050707
  4. FENTANYL [Suspect]
     Indication: ANAESTHETIC PREMEDICATION
     Dosage: 75 MCG, SINGLE,INTRAVENOUS
     Route: 042
     Dates: start: 20050707, end: 20050707
  5. VERSED (MIDAZOLAM HYDROCHLORIDE) 2MG/ML [Suspect]
     Indication: ANAESTHETIC PREMEDICATION
     Dosage: 1 MG,SINGLE, INTRAVENOUS
     Route: 042
     Dates: start: 20050707, end: 20050707
  6. MARCAINE (BUPIVACAINE) 0.5% [Suspect]
     Indication: ANAESTHETIC PREMEDICATION
     Dosage: INTERCOSTAL BLOCK X 1 DOSE
     Dates: start: 20050707, end: 20050707
  7. DIPRIVAN (PROPOFOL) 1MG/ML [Suspect]
     Indication: INDUCTION OF ANAESTHESIA
     Dosage: 180 MG, SINGLE, IV BOLUS
     Route: 040
     Dates: start: 20050707, end: 20050707
  8. SUCCINYLCHOLINE CHLORIDE [Suspect]
     Indication: INDUCTION OF ANAESTHESIA
     Dosage: 120 MG, SINGLE, INTRAVENOUS
     Route: 042
     Dates: start: 20050707, end: 20050707
  9. FORANE [Suspect]
     Indication: INDUCTION OF ANAESTHESIA
     Dosage: SINGLE, RESPIRATORY
     Route: 055
     Dates: start: 20050707, end: 20050707

REACTIONS (5)
  - COORDINATION ABNORMAL [None]
  - DRUG HYPERSENSITIVITY [None]
  - DRUG INTERACTION POTENTIATION [None]
  - MUSCLE TWITCHING [None]
  - NEUROLOGICAL SYMPTOM [None]
